FAERS Safety Report 21264050 (Version 3)
Quarter: 2023Q2

REPORT INFORMATION
  Report Type: Report from Study
  Country: NO (occurrence: NO)
  Receive Date: 20220829
  Receipt Date: 20230519
  Transmission Date: 20230722
  Serious: Yes (Hospitalization)
  Sender: FDA-Public Use
  Company Number: NO-NOVOPROD-949768

PATIENT
  Age: 61 Year
  Sex: Male
  Weight: 114 kg

DRUGS (6)
  1. SEMAGLUTIDE [Suspect]
     Active Substance: SEMAGLUTIDE
     Indication: Obesity
     Dosage: 2.4 MG, QW
     Route: 058
     Dates: start: 20190515
  2. ASPIRIN [Concomitant]
     Active Substance: ASPIRIN
     Dosage: UNK
     Dates: start: 20190217
  3. ATORVASTATIN [Concomitant]
     Active Substance: ATORVASTATIN
     Dosage: UNK
     Dates: start: 20190217
  4. METOPROLOL [Concomitant]
     Active Substance: METOPROLOL
     Dosage: 50.0,MG,
     Dates: start: 20190612
  5. EZETIMIBE [Concomitant]
     Active Substance: EZETIMIBE
     Dosage: 10.0,MG,
     Dates: start: 20190424
  6. RAMIPRIL [Concomitant]
     Active Substance: RAMIPRIL
     Dosage: 1.25,MG,
     Dates: start: 20190827

REACTIONS (2)
  - Cholangitis [Recovered/Resolved]
  - Cholelithiasis [Recovering/Resolving]

NARRATIVE: CASE EVENT DATE: 20220724
